FAERS Safety Report 7397047-2 (Version None)
Quarter: 2011Q2

REPORT INFORMATION
  Report Type: 
  Country: None (occurrence: None)
  Receive Date: 20110406
  Receipt Date: 20110328
  Transmission Date: 20111010
  Serious: Yes (Other)
  Sender: FDA-Public Use
  Company Number: US-ELI_LILLY_AND_COMPANY-US201103008157

PATIENT
  Age: 57 Year
  Sex: Female

DRUGS (2)
  1. LANTUS [Concomitant]
  2. HUMALOG MIX 75/25 [Suspect]
     Indication: DIABETES MELLITUS

REACTIONS (3)
  - HEMIPARESIS [None]
  - CEREBROVASCULAR ACCIDENT [None]
  - MOTOR DYSFUNCTION [None]
